FAERS Safety Report 7902581-X (Version None)
Quarter: 2011Q4

REPORT INFORMATION
  Report Type: 
  Country: None (occurrence: None)
  Receive Date: 20111108
  Receipt Date: 20111024
  Transmission Date: 20120403
  Serious: Yes (Other)
  Sender: FDA-Public Use
  Company Number: TW-WATSON-2011-17693

PATIENT
  Age: 67 Year
  Sex: Female

DRUGS (1)
  1. ACARBOSE [Suspect]
     Indication: TYPE 2 DIABETES MELLITUS

REACTIONS (1)
  - PNEUMATOSIS INTESTINALIS [None]
